FAERS Safety Report 11611258 (Version 2)
Quarter: 2016Q1

REPORT INFORMATION
  Report Type: Spontaneous
  Country: IT (occurrence: IT)
  Receive Date: 20151008
  Receipt Date: 20160125
  Transmission Date: 20160525
  Serious: Yes (Other)
  Sender: FDA-Public Use
  Company Number: PHHY2015IT120693

PATIENT
  Age: 62 Year
  Sex: Male

DRUGS (2)
  1. ZOMETA [Suspect]
     Active Substance: ZOLEDRONIC ACID
     Indication: METASTASES TO BONE
     Dosage: 4 MG, QMO (MONTHLY)
     Route: 065
     Dates: start: 20130101, end: 20141001
  2. SUTENT [Concomitant]
     Active Substance: SUNITINIB MALATE
     Indication: METASTASES TO BONE
     Dosage: UNK
     Route: 065
     Dates: start: 20130101, end: 20131001

REACTIONS (1)
  - Osteonecrosis of jaw [Recovering/Resolving]

NARRATIVE: CASE EVENT DATE: 20141030
